FAERS Safety Report 18037292 (Version 1)
Quarter: 2020Q3

REPORT INFORMATION
  Report Type: Spontaneous
  Country: IN (occurrence: IN)
  Receive Date: 20200717
  Receipt Date: 20200717
  Transmission Date: 20201103
  Serious: Yes (Other)
  Sender: FDA-Public Use
  Company Number: IN-PFIZER INC-2020271335

PATIENT
  Age: 56 Year
  Sex: Male

DRUGS (1)
  1. ADRIAMYCIN [Suspect]
     Active Substance: DOXORUBICIN HYDROCHLORIDE
     Indication: ANGIOSARCOMA
     Dosage: UNK, CYCLIC (4 CYCLES, SINGLE?AGENT CHEMOTHERAPY)

REACTIONS (3)
  - Blood count abnormal [Unknown]
  - Drug intolerance [Unknown]
  - Pneumonia [Unknown]
